FAERS Safety Report 9381513 (Version 2)
Quarter: 2013Q4

REPORT INFORMATION
  Report Type: Spontaneous
  Country: GB (occurrence: GB)
  Receive Date: 20130703
  Receipt Date: 20131105
  Transmission Date: 20140711
  Serious: Yes (Death)
  Sender: FDA-Public Use
  Company Number: PHHY2013GB069432

PATIENT
  Age: 80 Year
  Sex: Female
  Weight: 57 kg

DRUGS (3)
  1. ZOLEDRONATE [Suspect]
     Indication: OSTEOPOROSIS
     Dosage: 5 MG
     Route: 042
     Dates: start: 20130531, end: 20130531
  2. VITAMIN D [Concomitant]
     Indication: ARTHRITIS
     Dosage: UNK UKN, UNK
  3. STRONTIUM RANELATE [Concomitant]
     Indication: ARTHRITIS
     Dosage: UNK UKN, UNK

REACTIONS (4)
  - Acute myocardial infarction [Fatal]
  - Arteriosclerosis coronary artery [Fatal]
  - Coronary artery thrombosis [Fatal]
  - Pericardial haemorrhage [Fatal]
